FAERS Safety Report 5017222-1 (Version None)
Quarter: 2006Q2

REPORT INFORMATION
  Report Type: 
  Country: None (occurrence: None)
  Receive Date: 20060602
  Receipt Date: 20060524
  Transmission Date: 20061013
  Serious: Yes (Disabling)
  Sender: FDA-Public Use
  Company Number: US-ABBOTT-06P-163-0334311-00

PATIENT
  Age: 35 Year
  Sex: Male

DRUGS (15)
  1. RITONAVIR SOFT GELATIN CAPSULES [Suspect]
     Indication: HIV INFECTION
     Route: 048
     Dates: start: 20050602
  2. DIDANOSINE [Suspect]
     Indication: HIV INFECTION
     Route: 048
     Dates: start: 20050602
  3. TRUVADA [Suspect]
     Indication: HIV INFECTION
     Route: 048
     Dates: start: 20050602
  4. EFAVIRENZ [Suspect]
     Indication: HIV INFECTION
     Route: 048
     Dates: start: 20030807
  5. INDINAVIR SULFATE [Suspect]
     Indication: HIV INFECTION
     Route: 048
     Dates: start: 20051008
  6. ZOLPIDEM TARTRATE [Concomitant]
     Indication: DRUG USE FOR UNKNOWN INDICATION
     Dates: start: 20030603
  7. BACTRIM [Concomitant]
     Indication: DRUG USE FOR UNKNOWN INDICATION
     Dates: start: 20030603
  8. VENLAFAXINE HCL [Concomitant]
     Indication: DRUG USE FOR UNKNOWN INDICATION
     Dates: start: 20030603
  9. SOMATROPIN [Concomitant]
     Indication: DRUG USE FOR UNKNOWN INDICATION
     Dates: start: 20030603
  10. VALACYCLOVIR HCL [Concomitant]
     Indication: DRUG USE FOR UNKNOWN INDICATION
     Dates: start: 20030603
  11. ZITHROMAX [Concomitant]
     Indication: DRUG USE FOR UNKNOWN INDICATION
     Dates: start: 20030603
  12. ALLOPURINOL [Concomitant]
     Indication: DRUG USE FOR UNKNOWN INDICATION
     Dates: start: 20030603
  13. LISINOPRIL [Concomitant]
     Indication: DRUG USE FOR UNKNOWN INDICATION
     Dates: start: 20041216
  14. ISPAGHULA HUSK [Concomitant]
     Indication: DRUG USE FOR UNKNOWN INDICATION
     Dates: start: 20050202
  15. SOMATROPIN [Concomitant]
     Dates: start: 20030603

REACTIONS (1)
  - OSTEONECROSIS [None]
